FAERS Safety Report 6622806-0 (Version None)
Quarter: 2010Q1

REPORT INFORMATION
  Report Type: 
  Country: None (occurrence: None)
  Receive Date: 20100310
  Receipt Date: 20100301
  Transmission Date: 20100710
  Serious: Yes (Other)
  Sender: FDA-Public Use
  Company Number: CN-JNJFOC-20100301131

PATIENT
  Age: 37 Year
  Sex: Female

DRUGS (2)
  1. IMODIUM [Suspect]
     Indication: DIARRHOEA
     Route: 048
  2. NORFLOXACIN [Suspect]
     Indication: DIARRHOEA
     Dosage: 3 CAPSULES AT ONCE
     Route: 048

REACTIONS (4)
  - BURNING SENSATION [None]
  - INTENTIONAL DRUG MISUSE [None]
  - PRURITUS [None]
  - SWELLING [None]
